FAERS Safety Report 14020634 (Version 1)
Quarter: 2017Q3

REPORT INFORMATION
  Report Type: Spontaneous
  Country: US (occurrence: US)
  Receive Date: 20170928
  Receipt Date: 20170928
  Transmission Date: 20171128
  Serious: Yes (Other)
  Sender: FDA-Public Use
  Company Number: US-HERITAGE PHARMACEUTICALS-2017HTG00250

PATIENT
  Age: 44 Year
  Sex: Female

DRUGS (5)
  1. DOXYCYCLINE. [Suspect]
     Active Substance: DOXYCYCLINE
     Indication: IMPETIGO
  2. BACTRIM [Suspect]
     Active Substance: SULFAMETHOXAZOLE\TRIMETHOPRIM
     Indication: IMPETIGO
  3. UNSPECIFIED NUMBING SOLUTION [Suspect]
     Active Substance: UNSPECIFIED INGREDIENT
     Dosage: UNK
     Dates: start: 201708, end: 201708
  4. DOXYCYCLINE. [Suspect]
     Active Substance: DOXYCYCLINE
     Indication: ROSACEA
     Dosage: 100 MG, 2X/DAY
     Route: 048
     Dates: start: 20170811, end: 20170814
  5. BACTRIM [Suspect]
     Active Substance: SULFAMETHOXAZOLE\TRIMETHOPRIM
     Indication: ROSACEA
     Dosage: UNK
     Dates: start: 2017, end: 2017

REACTIONS (11)
  - Sensory disturbance [Recovered/Resolved]
  - Hypoaesthesia [Unknown]
  - Weight fluctuation [Unknown]
  - Tremor [Unknown]
  - Hypoaesthesia oral [Recovered/Resolved]
  - Dyspnoea [Unknown]
  - Feeling abnormal [Recovered/Resolved]
  - Anxiety [Unknown]
  - Drug ineffective [Recovered/Resolved]
  - Paraesthesia [Unknown]
  - Dysarthria [Not Recovered/Not Resolved]

NARRATIVE: CASE EVENT DATE: 201708
